FAERS Safety Report 9070973 (Version 1)
Quarter: 2013Q1

REPORT INFORMATION
  Report Type: Report from Study
  Country: JP (occurrence: JP)
  Receive Date: 20130129
  Receipt Date: 20130129
  Transmission Date: 20140127
  Serious: Yes (Other)
  Sender: FDA-Public Use
  Company Number: JP-GLAXOSMITHKLINE-B0860497A

PATIENT
  Age: 21 None
  Sex: Female
  Weight: 56 kg

DRUGS (27)
  1. LAMICTAL [Suspect]
     Indication: FRONTAL LOBE EPILEPSY
     Dosage: 25MG PER DAY
     Route: 048
     Dates: start: 20110701, end: 20110713
  2. LAMICTAL [Suspect]
     Indication: FRONTAL LOBE EPILEPSY
     Dosage: 25MG PER DAY
     Route: 048
     Dates: start: 20110714, end: 20110720
  3. LAMICTAL [Suspect]
     Indication: FRONTAL LOBE EPILEPSY
     Dosage: 25MG PER DAY
     Route: 048
     Dates: start: 20110916, end: 20110928
  4. LAMICTAL [Suspect]
     Indication: FRONTAL LOBE EPILEPSY
     Dosage: 25MG PER DAY
     Route: 048
     Dates: start: 20110930, end: 20111013
  5. LAMICTAL [Suspect]
     Indication: FRONTAL LOBE EPILEPSY
     Dosage: 25MG TWICE PER DAY
     Route: 048
     Dates: start: 20111014, end: 20111117
  6. LAMICTAL [Suspect]
     Indication: FRONTAL LOBE EPILEPSY
     Dosage: 50MG TWICE PER DAY
     Route: 048
     Dates: start: 20111118, end: 20120112
  7. LAMICTAL [Suspect]
     Indication: FRONTAL LOBE EPILEPSY
     Dosage: 62.5MG TWICE PER DAY
     Route: 048
     Dates: start: 20120113, end: 20120202
  8. LAMICTAL [Suspect]
     Indication: FRONTAL LOBE EPILEPSY
     Dosage: 75MG TWICE PER DAY
     Route: 048
     Dates: start: 20120203, end: 20120301
  9. LAMICTAL [Suspect]
     Indication: FRONTAL LOBE EPILEPSY
     Dosage: 82.5MG TWICE PER DAY
     Route: 048
     Dates: start: 20120302, end: 20120517
  10. LAMICTAL [Suspect]
     Indication: FRONTAL LOBE EPILEPSY
     Dosage: 100MG TWICE PER DAY
     Route: 048
     Dates: start: 20120518, end: 20120524
  11. LAMICTAL [Suspect]
     Indication: FRONTAL LOBE EPILEPSY
     Dosage: 75MG TWICE PER DAY
     Route: 048
     Dates: start: 20120525, end: 20120531
  12. LAMICTAL [Suspect]
     Indication: FRONTAL LOBE EPILEPSY
     Dosage: 50MG TWICE PER DAY
     Route: 048
     Dates: start: 20120601, end: 20120614
  13. DEPAKENE-R [Suspect]
     Indication: FRONTAL LOBE EPILEPSY
     Route: 048
     Dates: end: 20120531
  14. DEPAKENE-R [Suspect]
     Indication: FRONTAL LOBE EPILEPSY
     Route: 048
     Dates: start: 20120601
  15. RESTAMIN [Concomitant]
     Route: 061
  16. FLOMOX [Concomitant]
     Route: 048
  17. LOXONIN [Concomitant]
     Route: 048
  18. GENTACIN [Concomitant]
     Route: 061
  19. COMBEC [Concomitant]
     Route: 061
  20. LAMISIL [Concomitant]
     Route: 061
  21. AMOROLFINE [Concomitant]
     Route: 061
  22. VOLTAREN [Concomitant]
     Route: 054
  23. PANTOSIN [Concomitant]
     Route: 048
  24. MAGMITT [Concomitant]
     Indication: CONSTIPATION
     Route: 048
  25. CHINESE MEDICINE [Concomitant]
     Route: 048
  26. FLAGYL [Concomitant]
     Route: 067
  27. MUCOSTA [Concomitant]
     Indication: GLOMERULONEPHRITIS CHRONIC
     Route: 048

REACTIONS (17)
  - Epilepsy [Recovered/Resolved]
  - Abortion induced [Recovering/Resolving]
  - Vulvovaginal human papilloma virus infection [Recovering/Resolving]
  - Vulvovaginal candidiasis [Recovering/Resolving]
  - Vulvitis [Recovering/Resolving]
  - Hypoalbuminaemia [Unknown]
  - White blood cell count increased [Recovered/Resolved]
  - Red blood cell count decreased [Recovered/Resolved]
  - Haemoglobin decreased [Recovered/Resolved]
  - Haematocrit decreased [Recovered/Resolved]
  - Neutrophil count increased [Recovered/Resolved]
  - Lymphocyte count decreased [Recovered/Resolved]
  - Monocyte count increased [Recovered/Resolved]
  - Hypoproteinaemia [Recovered/Resolved]
  - C-reactive protein increased [Recovered/Resolved]
  - Hyponatraemia [Recovered/Resolved]
  - Hyperammonaemia [Unknown]
